FAERS Safety Report 5459796-2 (Version None)
Quarter: 2007Q3

REPORT INFORMATION
  Report Type: 
  Country: None (occurrence: None)
  Receive Date: 20070919
  Receipt Date: 20070914
  Transmission Date: 20080115
  Serious: Yes (Hospitalization)
  Sender: FDA-Public Use
  Company Number: US-MERCK-0703USA02108

PATIENT
  Age: 81 Year
  Sex: Female

DRUGS (6)
  1. FOSAMAX [Suspect]
     Indication: OSTEOPOROSIS
     Route: 048
     Dates: end: 20070227
  2. FOSAMAX [Suspect]
     Route: 048
     Dates: start: 20070811, end: 20070818
  3. SYNTHROID [Concomitant]
     Route: 065
  4. LITHIUM SUCCINATE [Concomitant]
     Route: 065
  5. TOPROL-XL [Concomitant]
     Route: 065
  6. CLARITIN [Concomitant]
     Route: 065

REACTIONS (7)
  - DIVERTICULUM OESOPHAGEAL [None]
  - DYSPHAGIA [None]
  - DYSPNOEA [None]
  - GASTRITIS [None]
  - LUNG DISORDER [None]
  - MENTAL STATUS CHANGES [None]
  - THERAPEUTIC AGENT TOXICITY [None]
